FAERS Safety Report 25169030 (Version 1)
Quarter: 2025Q2

REPORT INFORMATION
  Report Type: Report from Study
  Country: IN (occurrence: IN)
  Receive Date: 20250407
  Receipt Date: 20250407
  Transmission Date: 20250717
  Serious: Yes (Other)
  Sender: NOVARTIS
  Company Number: IN-002147023-NVSC2025IN055938

PATIENT
  Sex: Female

DRUGS (2)
  1. RIBOCICLIB [Suspect]
     Active Substance: RIBOCICLIB
     Indication: Breast cancer metastatic
     Dosage: 600 MG, QD (200MGX3) (ONCE DAILY AFTER BREAKFAST)
     Route: 048
     Dates: start: 20250318, end: 20250402
  2. FULVESTRANT [Concomitant]
     Active Substance: FULVESTRANT
     Indication: Product used for unknown indication
     Route: 030
     Dates: start: 20250325

REACTIONS (5)
  - Pericardial effusion [Unknown]
  - Metastases to bone [Unknown]
  - Metastases to the mediastinum [Unknown]
  - Pleural effusion [Unknown]
  - Metastases to liver [Unknown]
